FAERS Safety Report 4626611-6 (Version None)
Quarter: 2005Q1

REPORT INFORMATION
  Report Type: 
  Country: None (occurrence: None)
  Receive Date: 20050330
  Receipt Date: 20050316
  Transmission Date: 20050727
  Serious: Yes (Hospitalization)
  Sender: FDA-Public Use
  Company Number: 186267

PATIENT
  Sex: Female
  Weight: 69.8539 kg

DRUGS (14)
  1. AVONEX [Suspect]
     Indication: MULTIPLE SCLEROSIS
     Dosage: 30 UG; QW; IM
     Route: 030
     Dates: start: 19970101, end: 20030101
  2. AVONEX [Suspect]
     Indication: MULTIPLE SCLEROSIS
     Dosage: 30 UG;QW; IM
     Route: 030
     Dates: start: 20030101, end: 20041201
  3. AVONEX [Suspect]
     Indication: MULTIPLE SCLEROSIS
     Dates: start: 20041201, end: 20050215
  4. GLUCOSAMINE [Concomitant]
  5. CHONDROITIN [Concomitant]
  6. PRILOSEC [Concomitant]
  7. LINOLEIC ACID [Concomitant]
  8. ADVAIR DISKUS 100/50 [Concomitant]
  9. ALBUTEROL [Concomitant]
  10. ATARAX [Concomitant]
  11. PREVACID [Concomitant]
  12. PERCOCET [Concomitant]
  13. DEMADEX [Concomitant]
  14. ARANSESP [Concomitant]

REACTIONS (31)
  - ASTHENIA [None]
  - AUTOIMMUNE DISORDER [None]
  - CHROMOSOME ANALYSIS ABNORMAL [None]
  - CONDITION AGGRAVATED [None]
  - ERYTHEMA [None]
  - GENERALISED OEDEMA [None]
  - HEPATIC FAILURE [None]
  - HEPATIC FIBROSIS [None]
  - HEPATIC NECROSIS [None]
  - HEPATOSPLENOMEGALY [None]
  - INFLUENZA LIKE ILLNESS [None]
  - IRON DEFICIENCY ANAEMIA [None]
  - LEUKOCYTOSIS [None]
  - LYMPHADENOPATHY [None]
  - LYMPHOCYTE MORPHOLOGY ABNORMAL [None]
  - LYMPHOMA [None]
  - MARROW HYPERPLASIA [None]
  - MULTIPLE SCLEROSIS [None]
  - MYELOFIBROSIS [None]
  - NASOPHARYNGITIS [None]
  - OEDEMA PERIPHERAL [None]
  - PANCYTOPENIA [None]
  - PORTAL HYPERTENSION [None]
  - POST PROCEDURAL COMPLICATION [None]
  - PRURITUS [None]
  - RASH [None]
  - SPLEEN CONGESTION [None]
  - THERAPY NON-RESPONDER [None]
  - THROMBOCYTHAEMIA [None]
  - URINARY RETENTION [None]
  - URINARY TRACT INFECTION FUNGAL [None]
